FAERS Safety Report 22165673 (Version 1)
Quarter: 2023Q1

REPORT INFORMATION
  Report Type: Spontaneous
  Country: US (occurrence: None)
  Receive Date: 20230331
  Receipt Date: 20230331
  Transmission Date: 20230418
  Serious: Yes (Other)
  Sender: FDA-Public Use
  Company Number: None

PATIENT
  Age: 83 Year
  Sex: Female

DRUGS (2)
  1. BOTOX [Suspect]
     Active Substance: ONABOTULINUMTOXINA
     Indication: Osteoarthritis
     Dosage: OTHER STRENGTH : 100;?OTHER QUANTITY : 100UNIT;?OTHER ROUTE : INJECTION;?INJECT 1 VIAL INTRADERMALL
     Route: 050
     Dates: start: 20201229
  2. DUROLANE 60MG/3ML SYR (3=1) [Concomitant]

REACTIONS (2)
  - Surgery [None]
  - Therapy interrupted [None]

NARRATIVE: CASE EVENT DATE: 20230320
